FAERS Safety Report 6058331-8 (Version None)
Quarter: 2009Q1

REPORT INFORMATION
  Report Type: 
  Country: None (occurrence: None)
  Receive Date: 20090130
  Receipt Date: 20090123
  Transmission Date: 20090719
  Serious: Yes (Other)
  Sender: FDA-Public Use
  Company Number: JP-BRISTOL-MYERS SQUIBB COMPANY-14424022

PATIENT
  Age: 55 Year
  Sex: Female

DRUGS (4)
  1. TAXOL [Suspect]
     Indication: BREAST CANCER
     Route: 041
  2. ENDOXAN [Suspect]
     Indication: BREAST CANCER
  3. EPIRUBICIN HCL [Suspect]
     Indication: BREAST CANCER
  4. TAXOTERE [Suspect]
     Indication: BREAST CANCER

REACTIONS (1)
  - DERMATOMYOSITIS [None]
